FAERS Safety Report 6466244-2 (Version None)
Quarter: 2009Q4

REPORT INFORMATION
  Report Type: 
  Country: None (occurrence: None)
  Receive Date: 20091202
  Receipt Date: 20091120
  Transmission Date: 20100525
  Serious: Yes (Hospitalization)
  Sender: FDA-Public Use
  Company Number: PHHY2009US51141

PATIENT
  Sex: Female
  Weight: 72.1 kg

DRUGS (3)
  1. ERL 080A ERL+TAB [Suspect]
     Indication: RENAL TRANSPLANT
     Dosage: 1440 MG, UNK
     Route: 048
     Dates: start: 20091023
  2. PROGRAF [Concomitant]
     Indication: IMMUNOSUPPRESSION
     Dosage: 1.5 MG, BID
     Dates: start: 20091109
  3. PREDNISONE TAB [Concomitant]
     Indication: IMMUNOSUPPRESSION
     Dosage: 10 MG, QD
     Dates: start: 20091024

REACTIONS (6)
  - ABDOMINAL HERNIA [None]
  - ABDOMINAL TENDERNESS [None]
  - COUGH [None]
  - DRAIN REMOVAL [None]
  - FASCIAL OPERATION [None]
  - LOCALISED INTRAABDOMINAL FLUID COLLECTION [None]
